FAERS Safety Report 10903983 (Version 1)
Quarter: 2015Q1

REPORT INFORMATION
  Report Type: Spontaneous
  Country: GB (occurrence: None)
  Receive Date: 20150306
  Receipt Date: 20150306
  Transmission Date: 20150721
  Serious: Yes (Death)
  Sender: FDA-Public Use
  Company Number: FK201501050

PATIENT
  Age: 71 Year
  Sex: Female

DRUGS (4)
  1. VINORELBINE [Concomitant]
     Active Substance: VINORELBINE\VINORELBINE TARTRATE
  2. DEXAMETHASONE (DEXAMETHASONE) [Concomitant]
     Active Substance: DEXAMETHASONE
  3. CARBOPLATIN (MANUFACTURER UNKNOWN) (CARBOPLATIN) (CARBOPLATIN) [Suspect]
     Active Substance: CARBOPLATIN
     Indication: LUNG NEOPLASM MALIGNANT
     Dosage: 15 ML, TOTAL
     Route: 042
  4. ONDANSETRON. [Concomitant]
     Active Substance: ONDANSETRON

REACTIONS (2)
  - Drug hypersensitivity [None]
  - Back pain [None]

NARRATIVE: CASE EVENT DATE: 20150115
